FAERS Safety Report 8496908-0 (Version None)
Quarter: 2012Q3

REPORT INFORMATION
  Report Type: 
  Country: None (occurrence: None)
  Receive Date: 20120709
  Receipt Date: 20120627
  Transmission Date: 20120928
  Serious: Yes (Hospitalization)
  Sender: FDA-Public Use
  Company Number: US-ELI_LILLY_AND_COMPANY-US201206009550

PATIENT
  Sex: Female

DRUGS (14)
  1. FORTEO [Suspect]
     Dosage: 20 UG, QD
     Dates: start: 20111205
  2. URSODIOL [Concomitant]
     Dosage: 300 MG, QD
  3. VITAMIIN C [Concomitant]
     Dosage: 1 DF, QD
  4. VITAMIN D [Concomitant]
     Dosage: 1 DF, QD
  5. TORSEMIDE [Concomitant]
     Dosage: 80 MG, QD
  6. DILTIAZEM HYDROCHOLORIDE [Concomitant]
     Dosage: 300 MG, QD
  7. ERGOCALCIFEROL [Concomitant]
     Dosage: 50000 IU, WEEKLY (1/W)
  8. BRIMONIDINE TARTRATE [Concomitant]
     Dosage: 1 DF, BID
     Route: 047
  9. COUMADIN [Concomitant]
     Dosage: 5 MG, QD
  10. ZETIA [Concomitant]
     Dosage: 10 MG, QD
  11. TRAVATAN Z [Concomitant]
     Dosage: 1 DF, EACH EVENING
     Route: 047
  12. FLAXSEED OIL [Concomitant]
     Dosage: 1 DF, QD
  13. FORTEO [Suspect]
     Indication: OSTEOPOROSIS
     Dosage: 20 UG, QD
     Dates: start: 20111205
  14. MICARDIS [Concomitant]
     Dosage: 80 MG, QD

REACTIONS (5)
  - DRUG HYPERSENSITIVITY [None]
  - FLUID RETENTION [None]
  - ARTHROSCOPY [None]
  - OEDEMA PERIPHERAL [None]
  - PAIN [None]
